FAERS Safety Report 7270755-X (Version None)
Quarter: 2011Q1

REPORT INFORMATION
  Report Type: 
  Country: None (occurrence: None)
  Receive Date: 20110202
  Receipt Date: 20110124
  Transmission Date: 20110831
  Serious: Yes (Hospitalization, Other)
  Sender: FDA-Public Use
  Company Number: US-ASTRAZENECA-2010SE40240

PATIENT
  Age: 89 Year
  Sex: Female
  Weight: 63.5 kg

DRUGS (2)
  1. HEART MEDICATIONS [Concomitant]
  2. CRESTOR [Suspect]
     Indication: HYPERCHOLESTEROLAEMIA
     Route: 048
     Dates: start: 20050101

REACTIONS (4)
  - AORTIC STENOSIS [None]
  - ADVERSE EVENT [None]
  - MYOCARDIAL INFARCTION [None]
  - CARDIAC OPERATION [None]
